FAERS Safety Report 7601858-5 (Version None)
Quarter: 2011Q3

REPORT INFORMATION
  Report Type: 
  Country: None (occurrence: None)
  Receive Date: 20110711
  Receipt Date: 20110706
  Transmission Date: 20111222
  Serious: No
  Sender: FDA-Public Use
  Company Number: US-PFIZER INC-2011152890

PATIENT
  Sex: Male

DRUGS (2)
  1. LIPITOR [Suspect]
     Indication: PRODUCT USED FOR UNKNOWN INDICATION
     Dosage: UNK
     Dates: start: 20110401
  2. VESICARE [Suspect]
     Indication: INCONTINENCE
     Dosage: 10 MG, UNK
     Route: 048
     Dates: start: 20110401, end: 20110501

REACTIONS (1)
  - FURUNCLE [None]
